FAERS Safety Report 5339793-8 (Version None)
Quarter: 2007Q2

REPORT INFORMATION
  Report Type: 
  Country: None (occurrence: None)
  Receive Date: 20070525
  Receipt Date: 20070516
  Transmission Date: 20071010
  Serious: Yes (Life-Threatening)
  Sender: FDA-Public Use
  Company Number: CERZ-11552

PATIENT
  Age: 77 Year
  Sex: Female
  Weight: 62.1 kg

DRUGS (9)
  1. CEREZYME [Suspect]
     Indication: GAUCHER'S DISEASE
     Dosage: 3900 UNITS Q2WKS IV
     Route: 042
     Dates: start: 20060210
  2. VELCADE [Suspect]
     Indication: MULTIPLE MYELOMA
     Dates: start: 20070301
  3. SYNTHROID [Concomitant]
  4. GLUCOTROL [Concomitant]
  5. ACTOS [Concomitant]
  6. ZETIA [Concomitant]
  7. LISINOPRIL [Concomitant]
  8. FOSAMAX [Concomitant]
  9. PREMAIN [Concomitant]

REACTIONS (9)
  - ANAEMIA [None]
  - DECREASED APPETITE [None]
  - HYPOGLYCAEMIA [None]
  - INTERVERTEBRAL DISC DEGENERATION [None]
  - LUMBAR SPINAL STENOSIS [None]
  - MALAISE [None]
  - MULTIPLE MYELOMA [None]
  - PROTEINURIA [None]
  - UNEVALUABLE EVENT [None]
